FAERS Safety Report 5100623-0 (Version None)
Quarter: 2006Q3

REPORT INFORMATION
  Report Type: 
  Country: None (occurrence: None)
  Receive Date: 20060731
  Receipt Date: 20060520
  Transmission Date: 20061208
  Serious: No
  Sender: FDA-Public Use
  Company Number: 2006PV014154

PATIENT
  Age: 68 Year
  Sex: Female
  Weight: 88.4514 kg

DRUGS (10)
  1. BYETTA [Suspect]
     Indication: DIABETES MELLITUS NON-INSULIN-DEPENDENT
     Dosage: 5 MCG; BID; SC
     Route: 058
     Dates: start: 20060506
  2. GLUCOPHAGE [Concomitant]
  3. PRILOSEC [Concomitant]
  4. MEVACOR [Concomitant]
  5. DIOVAN [Concomitant]
  6. DICLOSENAC [Concomitant]
  7. FUROSEMIDE [Concomitant]
  8. ASPIRIN [Concomitant]
  9. VITAMIN E [Concomitant]
  10. ALBUTEROL [Concomitant]

REACTIONS (4)
  - ANOREXIA [None]
  - DRUG INEFFECTIVE [None]
  - EARLY SATIETY [None]
  - WEIGHT INCREASED [None]
